FAERS Safety Report 11129489 (Version 1)
Quarter: 2015Q2

REPORT INFORMATION
  Report Type: Spontaneous
  Country: US (occurrence: US)
  Receive Date: 20150521
  Receipt Date: 20150521
  Transmission Date: 20150821
  Serious: No
  Sender: FDA-Public Use
  Company Number: US-MALLINCKRODT-QSC-2014-0264

PATIENT
  Age: 60 Year
  Sex: Female

DRUGS (5)
  1. H.P. ACTHAR [Suspect]
     Active Substance: CORTICOTROPIN
     Indication: DERMATOMYOSITIS
     Dosage: 80 UNITS, BIW
     Route: 058
     Dates: start: 20130901, end: 201402
  2. H.P. ACTHAR [Suspect]
     Active Substance: CORTICOTROPIN
     Dosage: 40 UNITS, BIW
     Route: 058
     Dates: start: 201402, end: 201404
  3. IRBESARTAN. [Concomitant]
     Active Substance: IRBESARTAN
     Dosage: 300 MG, QD
     Route: 048
  4. H.P. ACTHAR [Suspect]
     Active Substance: CORTICOTROPIN
     Dosage: 80 UNITS, BIW
     Route: 058
     Dates: start: 20140409
  5. METOPROLOL [Concomitant]
     Active Substance: METOPROLOL
     Dosage: 100 MG, QD
     Route: 048

REACTIONS (7)
  - Acne [Unknown]
  - Palpitations [Unknown]
  - Sluggishness [Unknown]
  - Erythema [Recovered/Resolved]
  - Pruritus [Unknown]
  - Skin discomfort [Unknown]
  - Blood glucose increased [Unknown]

NARRATIVE: CASE EVENT DATE: 201311
